FAERS Safety Report 6918969-X (Version None)
Quarter: 2010Q3

REPORT INFORMATION
  Report Type: 
  Country: None (occurrence: None)
  Receive Date: 20100726
  Receipt Date: 20090630
  Transmission Date: 20110219
  Serious: No
  Sender: FDA-Public Use
  Company Number: 2009-00275

PATIENT
  Sex: Female
  Weight: 57.6068 kg

DRUGS (2)
  1. ZICAM COLD REMEDY NASAL GEL [Suspect]
     Dates: start: 20090401
  2. ZICAM COLD REMEDY NASAL GEL [Suspect]
     Dates: start: 20090401

REACTIONS (1)
  - ANOSMIA [None]
